FAERS Safety Report 21011046 (Version 1)
Quarter: 2022Q2

REPORT INFORMATION
  Report Type: Spontaneous
  Country: CN (occurrence: CN)
  Receive Date: 20220627
  Receipt Date: 20220627
  Transmission Date: 20220720
  Serious: Yes (Other)
  Sender: FDA-Public Use
  Company Number: CN-PFIZER INC-PV202200008615

PATIENT
  Age: 66 Year
  Sex: Male
  Weight: 44 kg

DRUGS (1)
  1. TYGACIL [Suspect]
     Active Substance: TIGECYCLINE
     Indication: Abdominal infection
     Dosage: 100 MG, 2X/DAY
     Route: 041
     Dates: start: 20220302, end: 20220309

REACTIONS (4)
  - Blood fibrinogen decreased [Recovered/Resolved]
  - Prothrombin time prolonged [Recovering/Resolving]
  - Thrombin time prolonged [Recovering/Resolving]
  - Off label use [Unknown]

NARRATIVE: CASE EVENT DATE: 20220302
